FAERS Safety Report 21349086 (Version 4)
Quarter: 2022Q4

REPORT INFORMATION
  Report Type: Report from Study
  Country: CN (occurrence: None)
  Receive Date: 20220919
  Receipt Date: 20221102
  Transmission Date: 20230113
  Serious: Yes (Death, Hospitalization)
  Sender: FDA-Public Use
  Company Number: CN-ROCHE-3180429

PATIENT
  Age: 72 Year
  Sex: Female

DRUGS (21)
  1. ATEZOLIZUMAB [Suspect]
     Active Substance: ATEZOLIZUMAB
     Indication: Rectal cancer
     Dosage: THE MOST RECENT DOSE OF COMBINATION DRUG ATEZOLIZUMAB INJECTION WAS ON 01-SEP-2022,
     Route: 041
     Dates: start: 20220812, end: 20220901
  2. EUTHYROX [Concomitant]
     Active Substance: LEVOTHYROXINE SODIUM
     Indication: Hypothyroidism
     Route: 048
     Dates: start: 20210730, end: 20220905
  3. MEGESTROL [Concomitant]
     Active Substance: MEGESTROL
     Route: 048
     Dates: start: 20220715, end: 20220905
  4. HERBALS [Concomitant]
     Active Substance: HERBALS
     Indication: Angiopathy
     Route: 048
     Dates: start: 2022, end: 20220905
  5. POTASSIUM CHLORIDE [Concomitant]
     Active Substance: POTASSIUM CHLORIDE
     Indication: Hypokalaemia
     Route: 048
     Dates: start: 20220805, end: 20220905
  6. MOXIFLOXACIN [Concomitant]
     Active Substance: MOXIFLOXACIN
  7. VITAMIN C [Concomitant]
     Active Substance: ASCORBIC ACID
  8. VITAMIN B6 [Concomitant]
     Active Substance: PYRIDOXINE HYDROCHLORIDE
  9. NADROPARIN CALCIUM [Concomitant]
     Active Substance: NADROPARIN CALCIUM
  10. BUDESONIDE [Concomitant]
     Active Substance: BUDESONIDE
  11. METHOXYPHENAMINE [Concomitant]
     Active Substance: METHOXYPHENAMINE
  12. MONTELUKAST SODIUM [Concomitant]
     Active Substance: MONTELUKAST SODIUM
     Route: 048
     Dates: start: 20220903, end: 20220905
  13. CALCIUM CARBONATE\CHOLECALCIFEROL [Concomitant]
     Active Substance: CALCIUM CARBONATE\CHOLECALCIFEROL
     Route: 048
     Dates: start: 20220903, end: 20220905
  14. FUROSEMIDE [Concomitant]
     Active Substance: FUROSEMIDE
     Indication: Polyuria
     Dates: start: 20220904, end: 20220905
  15. GLUTATHIONE [Concomitant]
     Active Substance: GLUTATHIONE
     Dates: start: 20220904, end: 20220905
  16. DOXOFYLLINE [Concomitant]
     Active Substance: DOXOFYLLINE
     Route: 041
     Dates: start: 20220905
  17. EPINEPHRINE [Concomitant]
     Active Substance: EPINEPHRINE
     Route: 040
     Dates: start: 20220905
  18. SANLITONG [Concomitant]
     Route: 048
     Dates: start: 20220902, end: 20220905
  19. PANTOPRAZOLE SODIUM [Concomitant]
     Active Substance: PANTOPRAZOLE SODIUM
     Dates: start: 20220903, end: 20220905
  20. DEXTROSE [Concomitant]
     Active Substance: DEXTROSE
  21. DIAZEPAM [Concomitant]
     Active Substance: DIAZEPAM
     Dosage: EVERY NIGHT
     Route: 048
     Dates: start: 20200103, end: 20200108

REACTIONS (1)
  - Pneumonia [Fatal]

NARRATIVE: CASE EVENT DATE: 20220902
